FAERS Safety Report 4682326-X (Version None)
Quarter: 2005Q2

REPORT INFORMATION
  Report Type: 
  Country: None (occurrence: None)
  Receive Date: 20050606
  Receipt Date: 20050418
  Transmission Date: 20051028
  Serious: Yes (Death, Other)
  Sender: FDA-Public Use
  Company Number: US-BRISTOL-MYERS SQUIBB COMPANY-12939559

PATIENT
  Age: 90 Year
  Sex: Female

DRUGS (3)
  1. BUSPAR [Suspect]
  2. CELEBREX [Concomitant]
  3. PAXIL [Concomitant]

REACTIONS (2)
  - CEREBRAL HAEMORRHAGE [None]
  - FALL [None]
